FAERS Safety Report 5954815-9 (Version None)
Quarter: 2008Q4

REPORT INFORMATION
  Report Type: 
  Country: None (occurrence: None)
  Receive Date: 20081031
  Receipt Date: 20080620
  Transmission Date: 20090506
  Serious: No
  Sender: FDA-Public Use
  Company Number: 2008PV035848

PATIENT
  Age: 62 Year
  Sex: Male

DRUGS (5)
  1. SYMLIN [Suspect]
     Indication: TYPE 2 DIABETES MELLITUS
     Dosage: 120 MCG;BID;SC
     Route: 058
     Dates: start: 20080101
  2. ACTOS [Concomitant]
  3. METFORMIN HCL [Concomitant]
  4. HUMALOG [Concomitant]
  5. LEVEMIR [Concomitant]

REACTIONS (1)
  - DRUG INEFFECTIVE [None]
